FAERS Safety Report 7242064-6 (Version None)
Quarter: 2011Q1

REPORT INFORMATION
  Report Type: 
  Country: None (occurrence: None)
  Receive Date: 20110124
  Receipt Date: 20110118
  Transmission Date: 20110831
  Serious: Yes (Other)
  Sender: FDA-Public Use
  Company Number: US-PFIZER INC-2011012379

PATIENT
  Sex: Female
  Weight: 81.6 kg

DRUGS (5)
  1. ACETYLSALICYLIC ACID [Concomitant]
     Indication: CARDIOVASCULAR DISORDER
     Dosage: 1 MG, UNK
  2. LOXAPINE [Concomitant]
     Indication: PSYCHOTIC DISORDER
     Dosage: UNK
  3. LIPITOR [Suspect]
     Indication: BLOOD CHOLESTEROL INCREASED
     Dosage: UNK
     Route: 048
     Dates: start: 20040101
  4. CHLORAMPHENICOL [Concomitant]
     Indication: ILL-DEFINED DISORDER
     Dosage: UNK
  5. CELEXA [Concomitant]
     Indication: SERUM SEROTONIN DECREASED
     Dosage: UNK

REACTIONS (5)
  - MENTAL DISORDER [None]
  - HYPERTENSION [None]
  - DYSPHAGIA [None]
  - CHOKING [None]
  - BLOOD TRIGLYCERIDES INCREASED [None]
